FAERS Safety Report 7400362-7 (Version None)
Quarter: 2011Q2

REPORT INFORMATION
  Report Type: 
  Country: None (occurrence: None)
  Receive Date: 20110407
  Receipt Date: 20110331
  Transmission Date: 20111010
  Serious: Yes (Hospitalization)
  Sender: FDA-Public Use
  Company Number: FR-MERCK-1101FRA00133

PATIENT
  Age: 61 Year
  Sex: Male

DRUGS (6)
  1. FUROSEMIDE [Concomitant]
     Route: 065
     Dates: end: 20101201
  2. DIGOXIN [Concomitant]
     Route: 048
     Dates: start: 20070101
  3. JANUMET [Suspect]
     Indication: TYPE 2 DIABETES MELLITUS
     Route: 048
     Dates: start: 20100601
  4. FLUINDIONE [Concomitant]
     Route: 048
     Dates: start: 20070101, end: 20101201
  5. ALISKIREN FUMARATE [Suspect]
     Indication: HYPERTENSION
     Route: 048
     Dates: start: 20100601, end: 20101201
  6. ASPIRIN AND PRAVASTATIN SODIUM [Concomitant]
     Route: 048
     Dates: start: 20090101

REACTIONS (3)
  - TOXIC SKIN ERUPTION [None]
  - PURPURA [None]
  - ORCHITIS [None]
